FAERS Safety Report 8496575-6 (Version None)
Quarter: 2012Q3

REPORT INFORMATION
  Report Type: 
  Country: None (occurrence: None)
  Receive Date: 20120709
  Receipt Date: 20120626
  Transmission Date: 20120928
  Serious: No
  Sender: FDA-Public Use
  Company Number: GB-ASTRAZENECA-2012SE43553

PATIENT
  Sex: Male

DRUGS (4)
  1. SYMBICORT [Suspect]
     Route: 055
  2. COMBIVENT [Concomitant]
  3. LORATADINE [Concomitant]
  4. SINGULAIR [Concomitant]

REACTIONS (2)
  - DRUG DOSE OMISSION [None]
  - RESPIRATION ABNORMAL [None]
